FAERS Safety Report 8294701-5 (Version None)
Quarter: 2012Q2

REPORT INFORMATION
  Report Type: 
  Country: None (occurrence: None)
  Receive Date: 20120418
  Receipt Date: 20120413
  Transmission Date: 20120825
  Serious: Yes (Hospitalization)
  Sender: FDA-Public Use
  Company Number: FR-PFIZER INC-2012092054

PATIENT
  Age: 61 Year
  Sex: Female

DRUGS (6)
  1. OFLOXACIN [Suspect]
     Dosage: 200 MG, 2X/DAY
     Route: 048
     Dates: start: 20120227, end: 20120314
  2. POLYETHYLENE GLYCOL [Suspect]
     Dosage: 20 G, 2X/DAY
     Route: 048
     Dates: start: 20120227, end: 20120314
  3. LASIX [Suspect]
     Dosage: 60 MG, 1X/DAY
     Route: 048
     Dates: start: 20120227, end: 20120314
  4. ALDACTONE [Suspect]
     Dosage: 75 MG, 1X/DAY
     Route: 048
     Dates: start: 20120301, end: 20120312
  5. ALDACTONE [Suspect]
     Dosage: 75 MG, 1X/DAY
     Route: 048
     Dates: start: 20120315, end: 20120319
  6. POTASSIUM CHLORIDE [Suspect]
     Dosage: 5 DF, 1X/DAY
     Route: 048
     Dates: start: 20120217, end: 20120314

REACTIONS (1)
  - NEUTROPENIA [None]
